FAERS Safety Report 8565520-7 (Version None)
Quarter: 2012Q3

REPORT INFORMATION
  Report Type: 
  Country: None (occurrence: None)
  Receive Date: 20120803
  Receipt Date: 20120723
  Transmission Date: 20120928
  Serious: Yes (Hospitalization)
  Sender: FDA-Public Use
  Company Number: US-UCBSA-039317

PATIENT
  Age: 55 Year
  Sex: Female
  Weight: 150 kg

DRUGS (1)
  1. CIMZIA [Suspect]
     Indication: RHEUMATOID ARTHRITIS
     Dosage: 400MG WEEKS AT 0, 2 AND 4 WEEKS FOLLOWED BY  200MG Q2W (AT WEEKS 6 TO 50)
     Route: 058
     Dates: start: 20110623, end: 20110929

REACTIONS (5)
  - UTERINE POLYP [None]
  - UTERINE HAEMORRHAGE [None]
  - ESCHERICHIA URINARY TRACT INFECTION [None]
  - ANAEMIA [None]
  - ATRIAL FIBRILLATION [None]
